FAERS Safety Report 11552790 (Version 1)
Quarter: 2015Q3

REPORT INFORMATION
  Report Type: Spontaneous
  Country: US (occurrence: None)
  Receive Date: 20150924
  Receipt Date: 20150924
  Transmission Date: 20151125
  Serious: Yes (Hospitalization)
  Sender: FDA-Public Use
  Company Number: None

PATIENT
  Age: 24 Year
  Sex: Male

DRUGS (1)
  1. HUMIRA [Suspect]
     Active Substance: ADALIMUMAB
     Indication: CROHN^S DISEASE
     Dosage: INJECTABLE EVERY OTHER WEEK
     Route: 058
     Dates: start: 20150813

REACTIONS (2)
  - Joint stiffness [None]
  - Intestinal resection [None]

NARRATIVE: CASE EVENT DATE: 20150922
